FAERS Safety Report 5073457-3 (Version None)
Quarter: 2006Q3

REPORT INFORMATION
  Report Type: 
  Country: None (occurrence: None)
  Receive Date: 20060803
  Receipt Date: 20060719
  Transmission Date: 20061208
  Serious: Yes (Hospitalization)
  Sender: FDA-Public Use
  Company Number: 2006S1006703

PATIENT
  Age: 40 Year
  Sex: Female
  Weight: 68.0396 kg

DRUGS (4)
  1. AMITRIPTYLINE HCL [Suspect]
     Indication: MIGRAINE PROPHYLAXIS
     Dosage: SEE IMAGE
     Dates: start: 20040406, end: 20040412
  2. AMITRIPTYLINE HCL [Suspect]
     Indication: MIGRAINE PROPHYLAXIS
     Dosage: SEE IMAGE
     Dates: start: 20040413, end: 20040419
  3. AMITRIPTYLINE HCL [Suspect]
     Indication: MIGRAINE PROPHYLAXIS
     Dosage: SEE IMAGE
     Dates: start: 20040420, end: 20040420
  4. AMITRIPTYLINE HCL [Suspect]
     Indication: MIGRAINE PROPHYLAXIS
     Dosage: SEE IMAGE
     Dates: start: 20040421, end: 20040427

REACTIONS (10)
  - ADENOMYOSIS [None]
  - ASCITES [None]
  - DYSMENORRHOEA [None]
  - HAEMATOCRIT DECREASED [None]
  - HAEMOGLOBIN DECREASED [None]
  - LEIOMYOMA [None]
  - MENORRHAGIA [None]
  - PELVIC HAEMATOMA [None]
  - POST PROCEDURAL COMPLICATION [None]
  - UMBILICAL HAEMORRHAGE [None]
